FAERS Safety Report 5097107-5 (Version None)
Quarter: 2006Q3

REPORT INFORMATION
  Report Type: 
  Country: None (occurrence: None)
  Receive Date: 20060906
  Receipt Date: 20060824
  Transmission Date: 20061208
  Serious: Yes (Hospitalization)
  Sender: FDA-Public Use
  Company Number: PHBS2006BR12983

PATIENT
  Age: 73 Year
  Sex: Female
  Weight: 56 kg

DRUGS (7)
  1. STALEVO 100 [Suspect]
     Indication: PARKINSON'S DISEASE
     Dosage: 1 DF, TID
     Route: 048
  2. STALEVO 100 [Suspect]
     Dosage: 1 DF, BID
     Route: 048
  3. STALEVO 100 [Suspect]
     Dosage: 1 DF, TID
     Route: 048
  4. LEPONEX [Suspect]
     Indication: PARKINSON'S DISEASE
     Dosage: 25 MG, TID
     Route: 048
  5. LEPONEX [Suspect]
     Route: 048
     Dates: start: 20060823
  6. REMINYL [Concomitant]
     Indication: PARKINSON'S DISEASE
     Dosage: 125 MG, TID
     Route: 048
  7. REQUIP [Concomitant]
     Indication: PARKINSON'S DISEASE
     Dosage: 50 MG, TID
     Route: 048

REACTIONS (5)
  - AGITATION [None]
  - DYSPHAGIA [None]
  - URINARY TRACT INFECTION [None]
  - URINE COLOUR ABNORMAL [None]
  - VOMITING [None]
